FAERS Safety Report 7289743-2 (Version None)
Quarter: 2011Q1

REPORT INFORMATION
  Report Type: 
  Country: None (occurrence: None)
  Receive Date: 20110214
  Receipt Date: 20110131
  Transmission Date: 20110831
  Serious: No
  Sender: FDA-Public Use
  Company Number: US-BIOGENIDEC-2011BI004372

PATIENT
  Age: 53 Year
  Sex: Female

DRUGS (1)
  1. TYSABRI [Suspect]
     Indication: MULTIPLE SCLEROSIS
     Route: 042
     Dates: start: 20061107

REACTIONS (5)
  - SOMNOLENCE [None]
  - FATIGUE [None]
  - AFFECT LABILITY [None]
  - MOBILITY DECREASED [None]
  - APHASIA [None]
